FAERS Safety Report 21758083 (Version 2)
Quarter: 2022Q4

REPORT INFORMATION
  Report Type: Spontaneous
  Country: BR (occurrence: BR)
  Receive Date: 20221221
  Receipt Date: 20221231
  Transmission Date: 20230113
  Serious: No
  Sender: FDA-Public Use
  Company Number: BR-002147023-NVSC2022BR292458

PATIENT
  Sex: Female
  Weight: 71 kg

DRUGS (2)
  1. AZOPT [Suspect]
     Active Substance: BRINZOLAMIDE
     Indication: Eye disorder
     Dosage: 1 DRP, Q12H (IN THE RIGHT EYE) (START DATE: ABOUT 10 YEARS AGO)
     Route: 047
  2. AZOPT [Suspect]
     Active Substance: BRINZOLAMIDE
     Dosage: UNK UNK, BID (VIAL) (TWICE A DAY IN EVERY 12 HOURS)
     Route: 047

REACTIONS (1)
  - Visual impairment [Unknown]
